FAERS Safety Report 9496122 (Version 1)
Quarter: 2013Q3

REPORT INFORMATION
  Report Type: Spontaneous
  Country: US (occurrence: US)
  Receive Date: 20130904
  Receipt Date: 20130904
  Transmission Date: 20140515
  Serious: Yes (Hospitalization)
  Sender: FDA-Public Use
  Company Number: US-ROCHE-1270086

PATIENT
  Age: 48 Year
  Sex: Male

DRUGS (8)
  1. XOLAIR [Suspect]
     Indication: ASTHMA
     Route: 058
     Dates: start: 201302
  2. QVAR [Concomitant]
     Indication: ASTHMA
     Route: 055
  3. SINGULAIR [Concomitant]
  4. ZOCOR [Concomitant]
  5. ALBUTEROL [Concomitant]
  6. CIPRO [Concomitant]
     Route: 065
     Dates: start: 201304
  7. ADVAIR DISKUS [Concomitant]
  8. LISINOPRIL [Concomitant]

REACTIONS (1)
  - Rotator cuff repair [Unknown]
